FAERS Safety Report 14858519 (Version 1)
Quarter: 2018Q2

REPORT INFORMATION
  Report Type: Spontaneous
  Country: HU (occurrence: HU)
  Receive Date: 20180508
  Receipt Date: 20180508
  Transmission Date: 20180711
  Serious: Yes (Other)
  Sender: FDA-Public Use
  Company Number: HU-TEVA-2018-HU-890490

PATIENT
  Age: 49 Year
  Sex: Male

DRUGS (11)
  1. CALCIUM FOLINATE [Suspect]
     Active Substance: LEUCOVORIN CALCIUM
     Indication: COLORECTAL CANCER METASTATIC
     Route: 042
     Dates: start: 20180212, end: 20180212
  2. SOLU-MEDROL [Concomitant]
     Active Substance: METHYLPREDNISOLONE SODIUM SUCCINATE
     Indication: PREMEDICATION
     Route: 042
  3. OXALIPLATIN. [Suspect]
     Active Substance: OXALIPLATIN
     Indication: COLORECTAL CANCER METASTATIC
     Route: 042
     Dates: start: 20180212, end: 20180212
  4. FLUOROURACIL. [Suspect]
     Active Substance: FLUOROURACIL
     Indication: COLORECTAL CANCER METASTATIC
     Dosage: INTENDED DOSE 1180 MG ON THE FIRST TWO DAYS OF CYCLE EVERY TWO WEEKS
     Route: 041
     Dates: start: 20180212, end: 20180213
  5. CLEXANE [Concomitant]
     Active Substance: ENOXAPARIN SODIUM
     Indication: THROMBOSIS PROPHYLAXIS
     Route: 058
  6. CERUCAL [Concomitant]
     Active Substance: METOCLOPRAMIDE HYDROCHLORIDE
     Indication: NAUSEA
     Route: 048
  7. FLUOROURACIL. [Suspect]
     Active Substance: FLUOROURACIL
     Route: 040
     Dates: start: 20180212, end: 20180213
  8. CHOLECALCIFEROL [Concomitant]
     Active Substance: CHOLECALCIFEROL
     Indication: PROPHYLAXIS
     Route: 048
  9. BENFOGAMMA [Concomitant]
     Indication: PROPHYLAXIS
     Route: 048
  10. ONDANSETRON KABI [Concomitant]
     Active Substance: ONDANSETRON
     Indication: PREMEDICATION
     Route: 042
  11. BERES CALCIUM [Concomitant]
     Indication: PROPHYLAXIS
     Route: 048

REACTIONS (1)
  - Chills [Recovered/Resolved]

NARRATIVE: CASE EVENT DATE: 20180212
